FAERS Safety Report 13892525 (Version 1)
Quarter: 2017Q3

REPORT INFORMATION
  Report Type: Spontaneous
  Country: US (occurrence: US)
  Receive Date: 20170822
  Receipt Date: 20170822
  Transmission Date: 20171127
  Serious: No
  Sender: FDA-Public Use
  Company Number: US-ROCHE-739526

PATIENT
  Age: 24 Year
  Sex: Female
  Weight: 54.9 kg

DRUGS (4)
  1. PERCOCET [Concomitant]
     Active Substance: ACETAMINOPHEN\OXYCODONE HYDROCHLORIDE
     Indication: PAIN
     Route: 065
  2. PREDNISONE. [Concomitant]
     Active Substance: PREDNISONE
     Indication: INFLAMMATION
     Route: 065
  3. ACTEMRA [Suspect]
     Active Substance: TOCILIZUMAB
     Indication: RHEUMATOID ARTHRITIS
     Dosage: 4 MG/KG; FORM INFUSION
     Route: 042
     Dates: start: 20101019, end: 20101102
  4. SOMA [Concomitant]
     Active Substance: CARISOPRODOL
     Indication: MUSCLE RELAXANT THERAPY
     Route: 065

REACTIONS (5)
  - Peripheral swelling [Unknown]
  - Skin exfoliation [Unknown]
  - Swelling face [Unknown]
  - Rash pruritic [Unknown]
  - Paraesthesia [Unknown]

NARRATIVE: CASE EVENT DATE: 20101026
